FAERS Safety Report 5325938-2 (Version None)
Quarter: 2007Q2

REPORT INFORMATION
  Report Type: 
  Country: None (occurrence: None)
  Receive Date: 20070514
  Receipt Date: 20070514
  Transmission Date: 20071010
  Serious: No
  Sender: FDA-Public Use
  Company Number: None

PATIENT
  Sex: Female
  Weight: 104.3273 kg

DRUGS (6)
  1. DIPROLENE AF [Suspect]
     Indication: STASIS DERMATITIS
     Dosage: APPLY BID BID SKIN
  2. DIPROLENE AF [Suspect]
     Indication: VARICOSE ULCERATION
     Dosage: APPLY BID BID SKIN
  3. TOPICAL + ORAL ANTIBIOTICS [Concomitant]
  4. ERYCIN 333 [Concomitant]
  5. ZITHROMAX [Concomitant]
  6. GENTAMICIN [Concomitant]

REACTIONS (2)
  - DRUG INEFFECTIVE [None]
  - THERAPEUTIC RESPONSE UNEXPECTED WITH DRUG SUBSTITUTION [None]
